FAERS Safety Report 8880800 (Version 1)
Quarter: 2012Q4

REPORT INFORMATION
  Report Type: 
  Country: SE (occurrence: SE)
  Receive Date: 20121101
  Receipt Date: 20121101
  Transmission Date: 20130627
  Serious: Yes (Hospitalization, Other)
  Sender: FDA-Public Use
  Company Number: SE-ASTRAZENECA-2012SE65727

PATIENT
  Sex: Female

DRUGS (13)
  1. ATACAND [Suspect]
     Route: 048
  2. XYLOCAIN GEL [Suspect]
     Route: 065
  3. OMEPRAZOLE [Concomitant]
  4. METOPROLOL [Concomitant]
  5. LAKTULOS ALTERNOVA [Concomitant]
  6. FOLACIN PFIZER AB [Concomitant]
  7. NITROMEX [Concomitant]
  8. ZYLORIC ASPEN EUROPE GMBH [Concomitant]
  9. FURIX TAKEDA PHARMA AB [Concomitant]
  10. IMDUR ASTRAZENECA AB [Concomitant]
     Route: 048
  11. TROMBYL PFIZER AB [Concomitant]
  12. VEXOL [Concomitant]
  13. PROPYLESS SCHERING PLOUGH EUROPE [Concomitant]
     Dosage: 200 MG/G
     Route: 003

REACTIONS (9)
  - Eating disorder [Unknown]
  - Decreased appetite [Unknown]
  - Dehydration [Unknown]
  - Genital haemorrhage [Unknown]
  - Lip swelling [Unknown]
  - C-reactive protein increased [Unknown]
  - Sinusitis [Unknown]
  - Oral candidiasis [Unknown]
  - Type 2 diabetes mellitus [Unknown]
